FAERS Safety Report 5318423-5 (Version None)
Quarter: 2007Q2

REPORT INFORMATION
  Report Type: 
  Country: None (occurrence: None)
  Receive Date: 20070507
  Receipt Date: 20070425
  Transmission Date: 20071010
  Serious: Yes (Hospitalization, Other)
  Sender: FDA-Public Use
  Company Number: JP-MERCK-0704USA06652

PATIENT
  Age: 28 Year
  Sex: Female

DRUGS (6)
  1. ALDOMET [Suspect]
     Route: 048
  2. ALDOMET [Suspect]
     Route: 048
  3. ALDOMET [Suspect]
     Route: 048
  4. UTEMERIN [Suspect]
     Route: 041
  5. UTEMERIN [Suspect]
     Route: 041
  6. UTEMERIN [Suspect]
     Route: 048

REACTIONS (6)
  - BLOOD PRESSURE INCREASED [None]
  - DRUG EXPOSURE DURING PREGNANCY [None]
  - FIBRIN D DIMER INCREASED [None]
  - FIBRIN DEGRADATION PRODUCTS INCREASED [None]
  - HEADACHE [None]
  - THREATENED LABOUR [None]
